FAERS Safety Report 21704362 (Version 2)
Quarter: 2022Q4

REPORT INFORMATION
  Report Type: Other
  Country: RU (occurrence: None)
  Receive Date: 20221209
  Receipt Date: 20221223
  Transmission Date: 20230113
  Serious: Yes (Other)
  Sender: FDA-Public Use
  Company Number: RU-ROCHE-3233495

PATIENT
  Age: 44 Year
  Sex: Male

DRUGS (2)
  1. ZELBORAF [Suspect]
     Active Substance: VEMURAFENIB
     Indication: Malignant melanoma
     Route: 065
  2. COTELLIC [Suspect]
     Active Substance: COBIMETINIB
     Indication: Malignant melanoma
     Route: 065

REACTIONS (9)
  - Metastases to liver [Unknown]
  - Underdose [Unknown]
  - Pyrexia [Unknown]
  - Myalgia [Unknown]
  - Abdominal pain upper [Not Recovered/Not Resolved]
  - Hepatic pain [Unknown]
  - Rash [Unknown]
  - Acne pustular [Unknown]
  - Nausea [Recovered/Resolved]

NARRATIVE: CASE EVENT DATE: 20221203
